FAERS Safety Report 24208971 (Version 1)
Quarter: 2024Q3

REPORT INFORMATION
  Report Type: Spontaneous
  Country: US (occurrence: US)
  Receive Date: 20240814
  Receipt Date: 20240814
  Transmission Date: 20241017
  Serious: No
  Sender: CHATTEM
  Company Number: US-OPELLA-2024OHG024075

PATIENT
  Age: 3 Month
  Sex: Male

DRUGS (1)
  1. SELENIUM [Suspect]
     Active Substance: SELENIUM
     Indication: Neonatal lupus erythematosus

REACTIONS (3)
  - Off label use [Unknown]
  - Drug ineffective [Unknown]
  - No adverse event [Unknown]
